FAERS Safety Report 8095075-5 (Version None)
Quarter: 2012Q1

REPORT INFORMATION
  Report Type: 
  Country: None (occurrence: None)
  Receive Date: 20120125
  Receipt Date: 20120118
  Transmission Date: 20120608
  Serious: Yes (Hospitalization)
  Sender: FDA-Public Use
  Company Number: 7107343

PATIENT
  Age: 81 Year
  Sex: Male

DRUGS (1)
  1. LEVOTHYROXINE SODIUM [Suspect]
     Indication: PRODUCT USED FOR UNKNOWN INDICATION
     Dosage: SINGLE DOSE (275 MCG, 175 MCG ON MORNING AND 10 0MCG ON EVENING)
     Route: 048
     Dates: start: 20111218, end: 20111218

REACTIONS (7)
  - HYPERHIDROSIS [None]
  - TREMOR [None]
  - TACHYCARDIA [None]
  - HYPERTENSION [None]
  - INCORRECT DOSE ADMINISTERED [None]
  - MEDICATION ERROR [None]
  - FEELING HOT [None]
